FAERS Safety Report 7676464-7 (Version None)
Quarter: 2011Q3

REPORT INFORMATION
  Report Type: 
  Country: None (occurrence: None)
  Receive Date: 20110811
  Receipt Date: 20110805
  Transmission Date: 20111222
  Serious: Yes (Life-Threatening, Hospitalization)
  Sender: FDA-Public Use
  Company Number: GB-CELGENEUS-167-C5013-11081007

PATIENT
  Sex: Male

DRUGS (7)
  1. ANTITHROMBOTIC AGENTS [Concomitant]
     Indication: THROMBOSIS PROPHYLAXIS
     Route: 065
  2. MELPHALAN HYDROCHLORIDE [Suspect]
     Route: 065
     Dates: start: 20100717, end: 20100810
  3. THALIDOMIDE [Suspect]
     Indication: MULTIPLE MYELOMA
     Route: 048
     Dates: start: 20090810
  4. THALIDOMIDE [Suspect]
     Route: 048
     Dates: start: 20100717, end: 20100810
  5. PREDNISONE [Suspect]
     Indication: MULTIPLE MYELOMA
     Route: 065
     Dates: start: 20090810
  6. PREDNISONE [Suspect]
     Route: 065
     Dates: start: 20100717, end: 20100810
  7. MELPHALAN HYDROCHLORIDE [Suspect]
     Indication: MULTIPLE MYELOMA
     Route: 065
     Dates: start: 20090810

REACTIONS (1)
  - PLEURAL EFFUSION [None]
